FAERS Safety Report 9637220 (Version 5)
Quarter: 2014Q3

REPORT INFORMATION
  Report Type: Report from Study
  Country: US (occurrence: US)
  Receive Date: 20131022
  Receipt Date: 20140923
  Transmission Date: 20150326
  Serious: Yes (Hospitalization)
  Sender: FDA-Public Use
  Company Number: US-BIOGENIDEC-2013BI099787

PATIENT
  Age: 38 Year
  Sex: Female

DRUGS (1)
  1. TECFIDERA [Suspect]
     Active Substance: DIMETHYL FUMARATE
     Indication: MULTIPLE SCLEROSIS
     Route: 048
     Dates: start: 20130428, end: 20140531

REACTIONS (23)
  - Bladder spasm [Unknown]
  - Coordination abnormal [Unknown]
  - Visual field defect [Not Recovered/Not Resolved]
  - Cystitis [Recovered/Resolved]
  - Nephrolithiasis [Recovered/Resolved]
  - Type 1 diabetes mellitus [Unknown]
  - General physical health deterioration [Unknown]
  - Kidney infection [Recovered/Resolved]
  - Pain [Not Recovered/Not Resolved]
  - Memory impairment [Not Recovered/Not Resolved]
  - Abdominal pain upper [Recovered/Resolved]
  - Cognitive disorder [Not Recovered/Not Resolved]
  - Fall [Recovered/Resolved]
  - Pruritus [Not Recovered/Not Resolved]
  - Urinary tract infection [Recovered/Resolved]
  - Muscular weakness [Not Recovered/Not Resolved]
  - Multiple sclerosis relapse [Unknown]
  - Adverse drug reaction [Recovered/Resolved]
  - Adverse event [Unknown]
  - Musculoskeletal disorder [Unknown]
  - Flushing [Not Recovered/Not Resolved]
  - Blood urine [Recovered/Resolved]
  - Visual impairment [Unknown]

NARRATIVE: CASE EVENT DATE: 2013
